FAERS Safety Report 8807235 (Version 1)
Quarter: 2012Q4

REPORT INFORMATION
  Report Type: 
  Country: US (occurrence: US)
  Receive Date: 20120925
  Receipt Date: 20120925
  Transmission Date: 20130627
  Serious: No
  Sender: FDA-Public Use
  Company Number: US-ASTRAZENECA-2012SE72156

PATIENT
  Age: 52 Year
  Sex: Male
  Weight: 95.3 kg

DRUGS (2)
  1. PULMICORT RESPULES [Suspect]
     Indication: OESOPHAGITIS
     Route: 055
     Dates: start: 201207, end: 20120913
  2. ACIPHEX [Concomitant]

REACTIONS (3)
  - Dyspnoea [Unknown]
  - Drug dose omission [Unknown]
  - Off label use [Unknown]
